FAERS Safety Report 5302746-X (Version None)
Quarter: 2007Q2

REPORT INFORMATION
  Report Type: 
  Country: None (occurrence: None)
  Receive Date: 20070419
  Receipt Date: 20070412
  Transmission Date: 20071010
  Serious: Yes (Life-Threatening)
  Sender: FDA-Public Use
  Company Number: FR-PFIZER INC-2007029529

PATIENT
  Sex: Male

DRUGS (2)
  1. SALAZOPYRINE [Suspect]
     Dates: start: 19910615, end: 20051231
  2. ETANERCEPT [Suspect]

REACTIONS (4)
  - CAESAREAN SECTION [None]
  - CONGENITAL PULMONARY ARTERY ANOMALY [None]
  - TRANSMISSION OF DRUG VIA SEMEN [None]
  - VENTRICULAR SEPTAL DEFECT [None]
